FAERS Safety Report 7502653-8 (Version None)
Quarter: 2011Q2

REPORT INFORMATION
  Report Type: 
  Country: None (occurrence: None)
  Receive Date: 20110525
  Receipt Date: 20110516
  Transmission Date: 20111010
  Serious: Yes (Other)
  Sender: FDA-Public Use
  Company Number: PHFR2011GB03070

PATIENT
  Sex: Female

DRUGS (1)
  1. CLOZARIL [Suspect]
     Indication: SCHIZOPHRENIA
     Route: 048
     Dates: start: 20001005

REACTIONS (5)
  - GASTROENTERITIS [None]
  - DIARRHOEA [None]
  - CLOSTRIDIAL INFECTION [None]
  - MALAISE [None]
  - VOMITING [None]
